FAERS Safety Report 16675250 (Version 1)
Quarter: 2019Q3

REPORT INFORMATION
  Report Type: Spontaneous
  Country: GB (occurrence: GB)
  Receive Date: 20190806
  Receipt Date: 20190806
  Transmission Date: 20191004
  Serious: Yes (Disabling, Other)
  Sender: FDA-Public Use
  Company Number: GB-ASCEND THERAPEUTICS US, LLC-2072813

PATIENT
  Age: 61 Year
  Sex: Female

DRUGS (3)
  1. TIBOLONE (TIBOLONE), UNKNOWN?INDICATION FOR USE: HORMONE REPLACEMENT T [Concomitant]
     Dates: start: 20181018
  2. ESTROGEL [Suspect]
     Active Substance: ESTRADIOL
     Dates: start: 20190403
  3. LEVOTHYROXINE. [Concomitant]
     Active Substance: LEVOTHYROXINE
     Dates: start: 20181018

REACTIONS (4)
  - Breast tenderness [Unknown]
  - Chest pain [Recovered/Resolved]
  - Chest discomfort [Unknown]
  - Chest discomfort [Unknown]

NARRATIVE: CASE EVENT DATE: 201904
